FAERS Safety Report 5239724-5 (Version None)
Quarter: 2007Q1

REPORT INFORMATION
  Report Type: 
  Country: None (occurrence: None)
  Receive Date: 20070212
  Receipt Date: 20070206
  Transmission Date: 20070707
  Serious: Yes (Death)
  Sender: FDA-Public Use
  Company Number: 163-20785-06060753

PATIENT
  Age: 14 Year
  Sex: Female

DRUGS (3)
  1. THALOMID [Suspect]
     Indication: DESMOPLASTIC SMALL ROUND CELL TUMOUR
     Dosage: SEE IMAGE
     Route: 048
     Dates: start: 20060206, end: 20060301
  2. THALOMID [Suspect]
     Indication: DESMOPLASTIC SMALL ROUND CELL TUMOUR
     Dosage: SEE IMAGE
     Route: 048
     Dates: start: 20060309, end: 20060410
  3. THALOMID [Suspect]

REACTIONS (4)
  - DESMOPLASTIC SMALL ROUND CELL TUMOUR [None]
  - DISEASE PROGRESSION [None]
  - NEOPLASM MALIGNANT [None]
  - RESPIRATORY FAILURE [None]
